FAERS Safety Report 4486540-8 (Version None)
Quarter: 2004Q4

REPORT INFORMATION
  Report Type: 
  Country: None (occurrence: None)
  Receive Date: 20041021
  Receipt Date: 20041012
  Transmission Date: 20050328
  Serious: Yes (Life-Threatening, Hospitalization)
  Sender: FDA-Public Use
  Company Number: STA-AE-04-MTX-417

PATIENT
  Age: 39 Year
  Sex: Male

DRUGS (7)
  1. RHEUMATREX [Suspect]
     Indication: PSORIATIC ARTHROPATHY
     Dosage: 6 MG 1X PER 1 WK, ORAL
     Route: 048
     Dates: start: 20010701, end: 20040720
  2. LOXONIN        (LOXOPROFEN SODIUM) [Concomitant]
  3. TENORMIN [Concomitant]
  4. ZYLORIC (ALLOPURINOL) [Concomitant]
  5. ALTAT       (ROXATIDINE ACETATE HYDROCHLORIDE) [Concomitant]
  6. LIPITOR [Concomitant]
  7. VOLTAREN [Concomitant]

REACTIONS (7)
  - ANOREXIA [None]
  - DIZZINESS POSTURAL [None]
  - GASTROINTESTINAL HAEMORRHAGE [None]
  - MALAISE [None]
  - PANCYTOPENIA [None]
  - PYREXIA [None]
  - STOMATITIS [None]
